FAERS Safety Report 14529655 (Version 2)
Quarter: 2018Q1

REPORT INFORMATION
  Report Type: Spontaneous
  Country: US (occurrence: US)
  Receive Date: 20180214
  Receipt Date: 20180326
  Transmission Date: 20180509
  Serious: No
  Sender: FDA-Public Use
  Company Number: US-ASTRAZENECA-2018SE13438

PATIENT
  Sex: Female
  Weight: 72.6 kg

DRUGS (1)
  1. TUDORZA PRESSAIR [Suspect]
     Active Substance: ACLIDINIUM BROMIDE
     Indication: SJOGREN^S SYNDROME
     Dosage: 400 MCG, ONE INHALATION TWO TIMES A DAY
     Route: 055

REACTIONS (6)
  - Product quality issue [Unknown]
  - Asthma [Unknown]
  - Off label use [Unknown]
  - Product use in unapproved indication [Unknown]
  - Eye disorder [Unknown]
  - Intentional product misuse [Unknown]
